FAERS Safety Report 6456930-2 (Version None)
Quarter: 2009Q4

REPORT INFORMATION
  Report Type: 
  Country: None (occurrence: None)
  Receive Date: 20091120
  Receipt Date: 20091110
  Transmission Date: 20100525
  Serious: Yes (Hospitalization)
  Sender: FDA-Public Use
  Company Number: 8054406

PATIENT
  Age: 72 Year
  Sex: Male
  Weight: 77.1 kg

DRUGS (3)
  1. KEPPRA [Suspect]
     Indication: CONVULSION
     Dosage: 750 MG 2/D PO
     Route: 048
  2. NORVASC [Concomitant]
  3. ZOCOR [Concomitant]

REACTIONS (1)
  - BRAIN NEOPLASM [None]
